FAERS Safety Report 13075439 (Version 1)
Quarter: 2016Q4

REPORT INFORMATION
  Report Type: Spontaneous
  Country: US (occurrence: US)
  Receive Date: 20161229
  Receipt Date: 20161229
  Transmission Date: 20170207
  Serious: Yes (Other)
  Sender: FDA-Public Use
  Company Number: None

PATIENT
  Age: 42 Year
  Sex: Female
  Weight: 65.25 kg

DRUGS (3)
  1. ONE-A-DAY NOS [Concomitant]
     Active Substance: MINERALS\VITAMINS
  2. MIRENA [Suspect]
     Active Substance: LEVONORGESTREL
     Indication: CONTRACEPTION
     Dosage: ?          QUANTITY:1 IUD;?
     Route: 067
  3. BIOTIN [Concomitant]
     Active Substance: BIOTIN

REACTIONS (3)
  - Back pain [None]
  - Alopecia [None]
  - Vaginal haemorrhage [None]

NARRATIVE: CASE EVENT DATE: 20161120
